FAERS Safety Report 5016408-X (Version None)
Quarter: 2006Q2

REPORT INFORMATION
  Report Type: 
  Country: None (occurrence: None)
  Receive Date: 20060531
  Receipt Date: 20060531
  Transmission Date: 20061013
  Serious: Yes (Hospitalization)
  Sender: FDA-Public Use
  Company Number: None

PATIENT
  Age: 34 Year
  Sex: Male
  Weight: 104.3273 kg

DRUGS (4)
  1. BLEOMYCIN [Suspect]
     Indication: HODGKIN'S DISEASE
     Dosage: 20 UNITS   CYCLE   IV
     Route: 042
     Dates: start: 20060330, end: 20060508
  2. DOXORUBICIN HCL [Concomitant]
  3. DACARBAZINE [Concomitant]
  4. VINBLASTINE SULFATE [Concomitant]

REACTIONS (1)
  - PULMONARY TOXICITY [None]
